FAERS Safety Report 11967030 (Version 1)
Quarter: 2016Q1

REPORT INFORMATION
  Report Type: Spontaneous
  Country: GB (occurrence: GB)
  Receive Date: 20160127
  Receipt Date: 20160127
  Transmission Date: 20160526
  Serious: Yes (Disabling)
  Sender: FDA-Public Use
  Company Number: GB-SA-2016SA010949

PATIENT
  Age: 76 Year
  Sex: Male
  Weight: 107 kg

DRUGS (11)
  1. DIPROBASE [Concomitant]
     Active Substance: CHLOROCRESOL
     Dosage: USE DAILY
     Dates: start: 20150528
  2. CLOPIDOGREL [Concomitant]
     Active Substance: CLOPIDOGREL BISULFATE
     Dates: start: 20141021
  3. FEXOFENADINE [Concomitant]
     Active Substance: FEXOFENADINE\FEXOFENADINE HYDROCHLORIDE
     Dates: start: 20160111
  4. METFORMIN [Concomitant]
     Active Substance: METFORMIN HYDROCHLORIDE
     Dosage: AS DIRECTED
     Dates: start: 20151027
  5. LOSARTAN. [Concomitant]
     Active Substance: LOSARTAN
     Dosage: STOP MEDICATION DURING DIARRHOEA
     Dates: start: 20150304
  6. ATORVASTATIN [Concomitant]
     Active Substance: ATORVASTATIN
     Dates: start: 20131205
  7. SOLIFENACIN [Concomitant]
     Active Substance: SOLIFENACIN
     Dates: start: 20151127, end: 20151227
  8. SILDENAFIL. [Concomitant]
     Active Substance: SILDENAFIL
     Dosage: USE AS DIRECTED
     Dates: start: 20140725
  9. DILTIAZEM HYDROCHLORIDE. [Concomitant]
     Active Substance: DILTIAZEM HYDROCHLORIDE
     Dates: start: 20130108
  10. INDAPAMIDE. [Suspect]
     Active Substance: INDAPAMIDE
     Route: 065
     Dates: start: 20151223
  11. SANDO K [Concomitant]
     Dates: start: 20151027

REACTIONS (3)
  - Face oedema [Not Recovered/Not Resolved]
  - Urticaria [Not Recovered/Not Resolved]
  - Orbital oedema [Not Recovered/Not Resolved]

NARRATIVE: CASE EVENT DATE: 20160111
